FAERS Safety Report 20030632 (Version 1)
Quarter: 2021Q4

REPORT INFORMATION
  Report Type: Spontaneous
  Country: FR (occurrence: FR)
  Receive Date: 20211103
  Receipt Date: 20211103
  Transmission Date: 20220303
  Serious: Yes (Other)
  Sender: FDA-Public Use
  Company Number: FR-ABBVIE-21K-056-4145484-00

PATIENT
  Age: 74 Year
  Sex: Male
  Weight: 61 kg

DRUGS (5)
  1. DEPAKOTE [Suspect]
     Active Substance: DIVALPROEX SODIUM
     Indication: Bipolar disorder
     Route: 065
     Dates: start: 20190902, end: 20191104
  2. DEPAKOTE [Suspect]
     Active Substance: DIVALPROEX SODIUM
     Indication: Affective disorder
  3. ESCITALOPRAM OXALATE [Concomitant]
     Active Substance: ESCITALOPRAM OXALATE
     Indication: Product used for unknown indication
     Route: 065
  4. XANAX [Concomitant]
     Active Substance: ALPRAZOLAM
     Indication: Product used for unknown indication
     Route: 065
  5. IMOVANE [Concomitant]
     Active Substance: ZOPICLONE
     Indication: Product used for unknown indication
     Route: 065

REACTIONS (6)
  - Blindness [Unknown]
  - Memory impairment [Unknown]
  - Onychoclasis [Unknown]
  - Alopecia [Unknown]
  - Somnolence [Unknown]
  - Tremor [Unknown]

NARRATIVE: CASE EVENT DATE: 20191007
